FAERS Safety Report 17601729 (Version 1)
Quarter: 2020Q1

REPORT INFORMATION
  Report Type: Report from Study
  Country: None (occurrence: CO)
  Receive Date: 20200331
  Receipt Date: 20200331
  Transmission Date: 20200409
  Serious: Yes (Hospitalization, Other)
  Sender: FDA-Public Use
  Company Number: CO-ABBVIE-20K-036-3344288-00

PATIENT
  Age: 71 Year
  Sex: Female

DRUGS (2)
  1. ZEMPLAR [Suspect]
     Active Substance: PARICALCITOL
     Indication: CHRONIC KIDNEY DISEASE
  2. ZEMPLAR [Suspect]
     Active Substance: PARICALCITOL
     Indication: HYPERPARATHYROIDISM SECONDARY
     Route: 048
     Dates: start: 20190903, end: 20200207

REACTIONS (7)
  - Chest pain [Recovering/Resolving]
  - Asthenia [Recovering/Resolving]
  - Asphyxia [Recovering/Resolving]
  - Blood potassium increased [Recovering/Resolving]
  - Fatigue [Recovering/Resolving]
  - Blood glucose increased [Recovering/Resolving]
  - Transfusion [Recovering/Resolving]

NARRATIVE: CASE EVENT DATE: 20200305
